FAERS Safety Report 19040713 (Version 1)
Quarter: 2021Q1

REPORT INFORMATION
  Report Type: Spontaneous
  Country: US (occurrence: US)
  Receive Date: 20210322
  Receipt Date: 20210322
  Transmission Date: 20210420
  Serious: Yes (Death, Hospitalization, Other)
  Sender: FDA-Public Use
  Company Number: US-TEVA-2021-US-1890784

PATIENT
  Age: 54 Year
  Sex: Female

DRUGS (24)
  1. DOXORUBICIN [Concomitant]
     Active Substance: DOXORUBICIN
     Indication: POST TRANSPLANT LYMPHOPROLIFERATIVE DISORDER
     Dosage: R?CHOP CHEMOTHERAPY
     Route: 065
     Dates: start: 2019
  2. ETOPOSIDE. [Concomitant]
     Active Substance: ETOPOSIDE
     Indication: POST TRANSPLANT LYMPHOPROLIFERATIVE DISORDER
     Dosage: SALVAGE THERAPY; R?ICE
     Route: 065
     Dates: start: 2019
  3. FLUDARABINE [Concomitant]
     Active Substance: FLUDARABINE PHOSPHATE
     Indication: POST TRANSPLANT LYMPHOPROLIFERATIVE DISORDER
     Dosage: LYMPHODEPLETING CHEMOTHERAPY
     Route: 065
     Dates: start: 2019
  4. MYCOPHENOLATE MOFETIL. [Suspect]
     Active Substance: MYCOPHENOLATE MOFETIL
     Indication: IMMUNOSUPPRESSANT DRUG THERAPY
     Route: 065
  5. TACROLIMUS. [Suspect]
     Active Substance: TACROLIMUS
     Indication: IMMUNOSUPPRESSANT DRUG THERAPY
     Route: 065
     Dates: end: 2019
  6. RITUXIMAB. [Concomitant]
     Active Substance: RITUXIMAB
     Indication: DIFFUSE LARGE B-CELL LYMPHOMA
     Dosage: SALVAGE THERAPY; R?ICE
     Route: 065
     Dates: start: 2019
  7. IFOSFAMIDE. [Concomitant]
     Active Substance: IFOSFAMIDE
     Indication: DIFFUSE LARGE B-CELL LYMPHOMA
  8. CARBOPLATIN. [Concomitant]
     Active Substance: CARBOPLATIN
     Indication: POST TRANSPLANT LYMPHOPROLIFERATIVE DISORDER
     Dosage: SALVAGE THERAPY; R?ICE
     Route: 065
     Dates: start: 2019
  9. AXI?CEL [Suspect]
     Active Substance: AXICABTAGENE CILOLEUCEL
     Indication: DIFFUSE LARGE B-CELL LYMPHOMA
  10. RITUXIMAB. [Concomitant]
     Active Substance: RITUXIMAB
     Dosage: ADDITIONAL DOSE
     Route: 065
     Dates: start: 2019
  11. VINCRISTINE [Concomitant]
     Active Substance: VINCRISTINE
     Indication: DIFFUSE LARGE B-CELL LYMPHOMA
  12. CARBOPLATIN. [Concomitant]
     Active Substance: CARBOPLATIN
     Indication: DIFFUSE LARGE B-CELL LYMPHOMA
  13. AXI?CEL [Suspect]
     Active Substance: AXICABTAGENE CILOLEUCEL
     Indication: POST TRANSPLANT LYMPHOPROLIFERATIVE DISORDER
     Route: 065
     Dates: start: 2019
  14. VINCRISTINE [Concomitant]
     Active Substance: VINCRISTINE
     Indication: POST TRANSPLANT LYMPHOPROLIFERATIVE DISORDER
     Dosage: R?CHOP CHEMOTHERAPY
     Route: 065
     Dates: start: 2019
  15. IFOSFAMIDE. [Concomitant]
     Active Substance: IFOSFAMIDE
     Indication: POST TRANSPLANT LYMPHOPROLIFERATIVE DISORDER
     Dosage: SALVAGE THERAPY; R?ICE
     Route: 065
     Dates: start: 2019
  16. ETOPOSIDE. [Concomitant]
     Active Substance: ETOPOSIDE
     Indication: DIFFUSE LARGE B-CELL LYMPHOMA
  17. RITUXIMAB. [Concomitant]
     Active Substance: RITUXIMAB
     Indication: POST TRANSPLANT LYMPHOPROLIFERATIVE DISORDER
     Dosage: R?CHOP CHEMOTHERAPY
     Route: 065
     Dates: start: 2019
  18. CYCLOPHOSPHAMIDE. [Concomitant]
     Active Substance: CYCLOPHOSPHAMIDE
     Indication: POST TRANSPLANT LYMPHOPROLIFERATIVE DISORDER
     Dosage: R?CHOP CHEMOTHERAPY
     Route: 065
     Dates: start: 2019
  19. SIROLIMUS. [Concomitant]
     Active Substance: SIROLIMUS
     Indication: IMMUNOSUPPRESSANT DRUG THERAPY
     Route: 065
     Dates: start: 2019
  20. PREDNISONE. [Suspect]
     Active Substance: PREDNISONE
     Indication: IMMUNOSUPPRESSANT DRUG THERAPY
     Route: 065
  21. CYCLOPHOSPHAMIDE. [Concomitant]
     Active Substance: CYCLOPHOSPHAMIDE
     Indication: DIFFUSE LARGE B-CELL LYMPHOMA
     Dosage: LYMPHODEPLETING CHEMOTHERAPY
     Route: 065
     Dates: start: 2019
  22. DOXORUBICIN [Concomitant]
     Active Substance: DOXORUBICIN
     Indication: DIFFUSE LARGE B-CELL LYMPHOMA
  23. FLUDARABINE [Concomitant]
     Active Substance: FLUDARABINE PHOSPHATE
     Indication: DIFFUSE LARGE B-CELL LYMPHOMA
  24. LENALIDOMIDE [Concomitant]
     Active Substance: LENALIDOMIDE
     Indication: DRUG THERAPY
     Route: 065
     Dates: start: 2019

REACTIONS (9)
  - Cytokine release syndrome [Recovered/Resolved]
  - Small intestinal obstruction [Unknown]
  - Lower gastrointestinal haemorrhage [Fatal]
  - Acute kidney injury [Recovered/Resolved]
  - Renal tubular necrosis [Unknown]
  - Diffuse large B-cell lymphoma [Fatal]
  - Therapy non-responder [Unknown]
  - Immune effector cell-associated neurotoxicity syndrome [Not Recovered/Not Resolved]
  - Post transplant lymphoproliferative disorder [Fatal]

NARRATIVE: CASE EVENT DATE: 2019
